FAERS Safety Report 6811834-8 (Version None)
Quarter: 2010Q2

REPORT INFORMATION
  Report Type: 
  Country: None (occurrence: None)
  Receive Date: 20100628
  Receipt Date: 20100611
  Transmission Date: 20101027
  Serious: Yes (Life-Threatening, Other)
  Sender: FDA-Public Use
  Company Number: 1000014555

PATIENT
  Age: 68 Year
  Sex: Male
  Weight: 59 kg

DRUGS (5)
  1. MEMANTINE HCL [Suspect]
     Indication: DEMENTIA
     Dosage: 10 MG (10 MG, 1 IN 1 D), ORAL
     Route: 048
     Dates: start: 20080108
  2. LEVOTHYROXINE SODIUM [Concomitant]
  3. STALEVO 100 [Concomitant]
  4. SOTALOL HCL [Concomitant]
  5. PAROXETINE HCL [Concomitant]

REACTIONS (5)
  - DIZZINESS [None]
  - HEMIPARESIS [None]
  - HYPOTENSION [None]
  - PARAESTHESIA [None]
  - TRANSIENT ISCHAEMIC ATTACK [None]
